FAERS Safety Report 7065158-7 (Version None)
Quarter: 2010Q4

REPORT INFORMATION
  Report Type: 
  Country: None (occurrence: None)
  Receive Date: 20101027
  Receipt Date: 19940831
  Transmission Date: 20110411
  Serious: Yes (Death)
  Sender: FDA-Public Use
  Company Number: DE-ROCHE-940320832001

PATIENT
  Age: 6 Year
  Sex: Female
  Weight: 18.8 kg

DRUGS (23)
  1. ROCEPHIN [Suspect]
     Indication: SEPSIS
     Route: 042
     Dates: start: 19930328, end: 19930330
  2. BACTRIM [Concomitant]
     Route: 065
     Dates: start: 19930303, end: 19930430
  3. COLISTIN SULFATE [Concomitant]
     Route: 065
     Dates: start: 19930303, end: 19930430
  4. TARGOCID [Concomitant]
     Indication: SEPSIS
     Route: 042
     Dates: start: 19930330, end: 19930404
  5. ZIENAM [Concomitant]
     Indication: SEPSIS
     Route: 042
     Dates: start: 19930330, end: 19930406
  6. ANCOTIL [Concomitant]
     Indication: SEPSIS
     Route: 042
     Dates: start: 19930401, end: 19930419
  7. AMPHOTERICIN B [Concomitant]
     Indication: SEPSIS
     Route: 042
     Dates: start: 19930401, end: 19930430
  8. VANCOMYCIN [Concomitant]
     Indication: SEPSIS
     Route: 042
     Dates: start: 19930405, end: 19930414
  9. CLONT [Concomitant]
     Indication: SEPSIS
     Route: 042
     Dates: start: 19930406, end: 19930410
  10. CIPRO [Concomitant]
     Indication: SEPSIS
     Route: 042
     Dates: start: 19930406, end: 19930410
  11. FORTUM [Concomitant]
     Indication: SEPSIS
     Route: 042
     Dates: start: 19930410, end: 19930420
  12. BIKLIN [Concomitant]
     Indication: SEPSIS
     Route: 042
     Dates: start: 19930410, end: 19930420
  13. VIBRAVENOES [Concomitant]
     Indication: SEPSIS
     Route: 042
     Dates: start: 19930414, end: 19930422
  14. ANTIPYRETIC [Concomitant]
     Route: 065
  15. BLOOD CELLS, PACKED HUMAN [Concomitant]
     Route: 065
  16. DIURETICS [Concomitant]
     Route: 065
  17. VOMEX A [Concomitant]
     Route: 054
  18. BUSCOPAN [Concomitant]
     Route: 065
  19. FORTRAL [Concomitant]
     Route: 065
  20. DECORTIN [Concomitant]
     Route: 065
  21. TEMGESIC [Concomitant]
     Route: 065
  22. CERTOMYCIN [Concomitant]
     Indication: SEPSIS
     Route: 042
     Dates: start: 19930328, end: 19930330
  23. TPN ELECTROLYTES IN PLASTIC CONTAINER [Concomitant]
     Route: 065
     Dates: start: 19930322, end: 19930419

REACTIONS (2)
  - CHOLELITHIASIS [None]
  - RENAL NEOPLASM [None]
